FAERS Safety Report 9153751 (Version 1)
Quarter: 2013Q1

REPORT INFORMATION
  Report Type: Spontaneous
  Country: US (occurrence: None)
  Receive Date: 20130207
  Receipt Date: 20130207
  Transmission Date: 20140127
  Serious: Yes (Other)
  Sender: FDA-Public Use
  Company Number: DKLU1088555

PATIENT
  Age: 37 Month
  Sex: Female

DRUGS (2)
  1. ONFI [Suspect]
     Indication: EPILEPSY
  2. SABRIL (SABRIL) (VIGABATRIN) [Concomitant]

REACTIONS (4)
  - Abasia [None]
  - Convulsion [None]
  - Fall [None]
  - Dizziness [None]
